FAERS Safety Report 8717392 (Version 3)
Quarter: 2014Q3

REPORT INFORMATION
  Report Type: Spontaneous
  Country: US (occurrence: US)
  Receive Date: 20120810
  Receipt Date: 20140811
  Transmission Date: 20150326
  Serious: No
  Sender: FDA-Public Use
  Company Number: US-GLAXOSMITHKLINE-A0966564A

PATIENT
  Age: 59 Year
  Sex: Male

DRUGS (2)
  1. L DOPA [Concomitant]
     Active Substance: LEVODOPA
  2. REQUIP XL [Suspect]
     Active Substance: ROPINIROLE HYDROCHLORIDE
     Indication: PARKINSON^S DISEASE
     Dosage: 12MG PER DAY
     Route: 048
     Dates: start: 201002

REACTIONS (7)
  - Ill-defined disorder [Unknown]
  - Tremor [Not Recovered/Not Resolved]
  - Balance disorder [Unknown]
  - Therapeutic response changed [Unknown]
  - Somnolence [Not Recovered/Not Resolved]
  - Malaise [Not Recovered/Not Resolved]
  - Drug administration error [Unknown]

NARRATIVE: CASE EVENT DATE: 201405
